FAERS Safety Report 5752536-9 (Version None)
Quarter: 2008Q2

REPORT INFORMATION
  Report Type: 
  Country: None (occurrence: None)
  Receive Date: 20080527
  Receipt Date: 20080527
  Transmission Date: 20081010
  Serious: Yes (Other)
  Sender: FDA-Public Use
  Company Number: None

PATIENT
  Age: 43 Year
  Sex: Female
  Weight: 120.2032 kg

DRUGS (8)
  1. BUPROPION HCL [Suspect]
     Indication: MAJOR DEPRESSION
     Dosage: 300 MG Q.D. PO
     Route: 048
     Dates: start: 20070201, end: 20070731
  2. CYCLOBENZAPRINE HCL [Concomitant]
  3. SEASONIQUE LEVOTHYROXINE [Concomitant]
  4. ACYCLOVIR SODIUM [Concomitant]
  5. PREVACID [Concomitant]
  6. LUNESTA [Concomitant]
  7. IBUROFEN [Concomitant]
  8. VICODIN [Concomitant]

REACTIONS (3)
  - DEPRESSION [None]
  - DRUG INEFFECTIVE [None]
  - THERAPEUTIC RESPONSE UNEXPECTED WITH DRUG SUBSTITUTION [None]
